FAERS Safety Report 5740258-X (Version None)
Quarter: 2008Q2

REPORT INFORMATION
  Report Type: 
  Country: None (occurrence: None)
  Receive Date: 20080513
  Receipt Date: 20080502
  Transmission Date: 20081010
  Serious: Yes (Hospitalization, Other)
  Sender: FDA-Public Use
  Company Number: 08H-087-0314249-00

PATIENT
  Age: 58 Year
  Sex: Male

DRUGS (5)
  1. VANCOMYCIN INJECTION (VANCOMYCIN HYDROCHLORIDE) (VANCOMYCIN HYDROCHLOR [Suspect]
     Indication: DRUG USE FOR UNKNOWN INDICATION
  2. AMINOPHYLLIN [Suspect]
     Indication: DRUG USE FOR UNKNOWN INDICATION
  3. LANSOPRAZOLE [Suspect]
     Indication: DRUG USE FOR UNKNOWN INDICATION
  4. KETOPROFEN [Suspect]
     Indication: DRUG USE FOR UNKNOWN INDICATION
  5. ETIZOLAM (ETIZOLAM) [Suspect]
     Indication: DRUG USE FOR UNKNOWN INDICATION

REACTIONS (2)
  - MUSCULOSKELETAL PAIN [None]
  - TOXIC EPIDERMAL NECROLYSIS [None]
